FAERS Safety Report 15136975 (Version 3)
Quarter: 2018Q4

REPORT INFORMATION
  Report Type: Report from Study
  Country: DE (occurrence: DE)
  Receive Date: 20180712
  Receipt Date: 20181001
  Transmission Date: 20190204
  Serious: Yes (Hospitalization, Other)
  Sender: FDA-Public Use
  Company Number: DE-MYLANLABS-2017M1078851

PATIENT
  Age: 60 Year
  Sex: Male
  Weight: 95 kg

DRUGS (60)
  1. FLUOROURACIL. [Suspect]
     Active Substance: FLUOROURACIL
     Dosage: UNK
  2. 5-FLUOROURACIL [Suspect]
     Active Substance: FLUOROURACIL
     Dosage: 6400 MG, UNK
     Route: 042
     Dates: start: 20171002, end: 20171004
  3. 5-FLUOROURACIL [Suspect]
     Active Substance: FLUOROURACIL
     Dosage: 6400 MG, UNK
     Route: 042
  4. 5-FLUOROURACIL [Suspect]
     Active Substance: FLUOROURACIL
     Dosage: 4800 MG, UNK
     Route: 042
     Dates: start: 20171016, end: 20171016
  5. 5-FLUOROURACIL [Suspect]
     Active Substance: FLUOROURACIL
     Dosage: 12800 MG, Q2W (6400 MG, 2X A WEEK)
     Dates: start: 20171002
  6. 5-FLUOROURACIL [Suspect]
     Active Substance: FLUOROURACIL
     Dosage: 4800 MG, UNK
     Route: 042
  7. AVASTIN [Suspect]
     Active Substance: BEVACIZUMAB
     Dosage: 475 MG, Q2W
     Route: 042
     Dates: start: 20160704, end: 20160704
  8. FOLINIC ACID [Suspect]
     Active Substance: LEUCOVORIN
     Dosage: UNK
     Route: 042
  9. FOLINIC ACID [Suspect]
     Active Substance: LEUCOVORIN
     Dosage: 800 MG, UNK
     Route: 042
     Dates: start: 20160704, end: 20170410
  10. METOCLOPRAMIDE. [Concomitant]
     Active Substance: METOCLOPRAMIDE
     Dosage: UNK
  11. 5-FLUOROURACIL [Suspect]
     Active Substance: FLUOROURACIL
     Dosage: 6400 MG, UNK
     Route: 040
     Dates: start: 20171001, end: 20171004
  12. 5-FLUOROURACIL [Suspect]
     Active Substance: FLUOROURACIL
     Dosage: UNK
     Route: 042
     Dates: start: 20171016, end: 20171016
  13. 5-FLUOROURACIL [Suspect]
     Active Substance: FLUOROURACIL
     Dosage: UNK, Q2W
  14. 5-FLUOROURACIL [Suspect]
     Active Substance: FLUOROURACIL
     Dosage: 6400 MG, UNK
     Route: 065
     Dates: start: 20171001, end: 20171004
  15. 5-FLUOROURACIL [Suspect]
     Active Substance: FLUOROURACIL
     Dosage: 6400 MG, UNK
     Route: 041
     Dates: start: 20170410, end: 20170412
  16. AVASTIN [Suspect]
     Active Substance: BEVACIZUMAB
     Dosage: 500 MG, UNK
     Route: 042
  17. FLUOROURACIL. [Suspect]
     Active Substance: FLUOROURACIL
     Indication: COLORECTAL CANCER
     Dosage: 800 MG, Q2W
     Route: 040
     Dates: start: 20160704, end: 20161205
  18. 5-FLUOROURACIL [Suspect]
     Active Substance: FLUOROURACIL
     Dosage: 800 MG, UNK
     Route: 040
  19. PALONOSETRON. [Suspect]
     Active Substance: PALONOSETRON HYDROCHLORIDE
     Indication: PROPHYLAXIS OF NAUSEA AND VOMITING
     Dosage: UNK
     Route: 065
     Dates: start: 20171030
  20. PALONOSETRON. [Suspect]
     Active Substance: PALONOSETRON HYDROCHLORIDE
     Dosage: UNK
  21. AVASTIN [Suspect]
     Active Substance: BEVACIZUMAB
     Dosage: 500 MG, UNK
     Route: 042
     Dates: start: 20171002
  22. AVASTIN [Suspect]
     Active Substance: BEVACIZUMAB
     Dosage: 500 MG, Q2W
     Route: 042
  23. 5-FLUOROURACIL                     /00098801/ [Concomitant]
     Active Substance: FLUOROURACIL
     Indication: PRODUCT USED FOR UNKNOWN INDICATION
     Dosage: 6400 MG, UNK
     Route: 041
     Dates: start: 20170410, end: 20170412
  24. ONDANSETRON [Suspect]
     Active Substance: ONDANSETRON
     Dosage: 8 MG, UNK
     Route: 042
  25. FLUOROURACIL. [Suspect]
     Active Substance: FLUOROURACIL
     Dosage: 4800 MG, UNK
     Route: 042
     Dates: start: 20171016, end: 20171018
  26. 5-FLUOROURACIL [Suspect]
     Active Substance: FLUOROURACIL
     Indication: COLORECTAL CANCER METASTATIC
     Dosage: 800 MG, Q2W
     Route: 042
     Dates: start: 20160704, end: 20161205
  27. 5-FLUOROURACIL [Suspect]
     Active Substance: FLUOROURACIL
     Dosage: 4800 MG, UNK
     Route: 042
     Dates: start: 20171016, end: 20171018
  28. 5-FLUOROURACIL [Suspect]
     Active Substance: FLUOROURACIL
     Dosage: 4800 MG, UNK
     Route: 042
     Dates: start: 20170216, end: 20170218
  29. AVASTIN [Suspect]
     Active Substance: BEVACIZUMAB
     Indication: COLORECTAL CANCER METASTATIC
     Dosage: 500 MG, Q2W
     Route: 042
     Dates: start: 20171016, end: 20171016
  30. ONDANSETRON [Suspect]
     Active Substance: ONDANSETRON
     Indication: PROPHYLAXIS OF NAUSEA AND VOMITING
     Dosage: 8 MG, Q2W
     Route: 042
     Dates: start: 20170116
  31. IRINOTECAN MYLAN [Suspect]
     Active Substance: IRINOTECAN
     Indication: PRODUCT USED FOR UNKNOWN INDICATION
     Dosage: 360 MG, 2X A WEEK,0.5 WEEK
     Route: 042
     Dates: start: 20160704, end: 20161205
  32. IRINOTECAN MYLAN [Suspect]
     Active Substance: IRINOTECAN
     Dosage: 360 MG, QW
     Route: 042
     Dates: start: 20171016, end: 20171016
  33. 5-FLUOROURACIL [Suspect]
     Active Substance: FLUOROURACIL
     Dosage: 6400 MG, UNK
     Route: 065
  34. AVASTIN [Suspect]
     Active Substance: BEVACIZUMAB
     Dosage: 1000 MG, Q2W (500 MG,2X A WEEK)
     Route: 042
     Dates: start: 20171016
  35. FOLINIC ACID [Suspect]
     Active Substance: LEUCOVORIN
     Dosage: 800 MG, UNK
     Route: 042
  36. RAMIPRIL. [Concomitant]
     Active Substance: RAMIPRIL
     Dosage: UNK
  37. DEXAMETHASON                       /00016001/ [Concomitant]
     Active Substance: DEXAMETHASONE
     Dosage: 12 MG, Q2W
     Route: 042
     Dates: start: 20170116
  38. IRINOTECAN MYLAN [Suspect]
     Active Substance: IRINOTECAN
     Dosage: 720 MG, QW, (360 MG, 2X A WEEK)
     Route: 042
     Dates: start: 20160704
  39. FLUOROURACIL. [Suspect]
     Active Substance: FLUOROURACIL
     Dosage: 6400 MG, Q2W
     Route: 042
     Dates: start: 20170410, end: 20170412
  40. 5-FLUOROURACIL [Suspect]
     Active Substance: FLUOROURACIL
     Dosage: 12800 MG, Q2W (6400 MG, 2X A WEEK)
     Route: 042
     Dates: start: 20170410
  41. AVASTIN [Suspect]
     Active Substance: BEVACIZUMAB
     Dosage: 950 MG, Q2W (475 MG,2X A WEEK)
     Route: 042
     Dates: start: 20160704
  42. EMEND [Concomitant]
     Active Substance: APREPITANT
     Dosage: 205 MG, UNK
  43. FLUOROURACIL. [Suspect]
     Active Substance: FLUOROURACIL
     Dosage: 800 MG, UNK
     Route: 042
  44. 5-FLUOROURACIL [Suspect]
     Active Substance: FLUOROURACIL
     Dosage: 4800-6400MG
     Route: 041
     Dates: start: 20160704
  45. 5-FLUOROURACIL [Suspect]
     Active Substance: FLUOROURACIL
     Dosage: UNK, BOLUS
     Route: 042
  46. 5-FLUOROURACIL [Suspect]
     Active Substance: FLUOROURACIL
     Indication: COLORECTAL CANCER METASTATIC
     Dosage: 1 UNK, UNK,
     Route: 041
     Dates: start: 20160704
  47. BEVACIZUMAB. [Suspect]
     Active Substance: BEVACIZUMAB
     Indication: COLORECTAL CANCER METASTATIC
     Dosage: 500 MG, UNK
     Route: 042
     Dates: start: 20171016, end: 20171016
  48. BEVACIZUMAB. [Suspect]
     Active Substance: BEVACIZUMAB
     Dosage: 475 UNK, UNK
     Route: 042
     Dates: start: 20160704, end: 20160704
  49. FOLINIC ACID [Suspect]
     Active Substance: LEUCOVORIN
     Dosage: 800 MG, UNK
     Route: 065
     Dates: start: 20171016, end: 20171016
  50. MCP [Concomitant]
     Active Substance: METOCLOPRAMIDE HYDROCHLORIDE
     Indication: PRODUCT USED FOR UNKNOWN INDICATION
     Dosage: UNK
     Route: 048
  51. NOVALGIN (METAMIZOLE SODIUM) [Concomitant]
     Active Substance: METAMIZOLE SODIUM
     Indication: ANALGESIC THERAPY
     Dosage: UNK
     Route: 048
  52. METOCLOPRAMIDE. [Concomitant]
     Active Substance: METOCLOPRAMIDE
     Indication: PRODUCT USED FOR UNKNOWN INDICATION
     Dosage: UNK
     Route: 048
  53. 5-FLUOROURACIL [Suspect]
     Active Substance: FLUOROURACIL
     Dosage: 6400 MG, UNK
     Route: 040
  54. BEVACIZUMAB. [Suspect]
     Active Substance: BEVACIZUMAB
     Dosage: 500 UNK, UNK
     Route: 042
     Dates: start: 20171002, end: 20171002
  55. RIVAROXABAN [Suspect]
     Active Substance: RIVAROXABAN
     Indication: DEEP VEIN THROMBOSIS
     Dosage: 20 MG, 1X/DAY:QD
     Route: 048
     Dates: start: 20170524
  56. FOLINIC ACID [Suspect]
     Active Substance: LEUCOVORIN
     Indication: COLORECTAL CANCER
     Dosage: 800 MG, Q2W
     Route: 042
     Dates: start: 20160704, end: 20170410
  57. RAMIPRIL. [Concomitant]
     Active Substance: RAMIPRIL
     Indication: HYPERTENSION
     Dosage: 2.5 MG, QD
     Route: 048
     Dates: start: 20170410
  58. DEXAMETHASON                       /00016001/ [Concomitant]
     Active Substance: DEXAMETHASONE
     Indication: PROPHYLAXIS OF NAUSEA AND VOMITING
     Dosage: 8 MG, Q2W
     Route: 042
     Dates: start: 20160604, end: 20161206
  59. EMEND [Concomitant]
     Active Substance: APREPITANT
     Indication: PROPHYLAXIS OF NAUSEA AND VOMITING
     Dosage: 125/80 MG
     Route: 048
  60. EMEND [Concomitant]
     Active Substance: APREPITANT
     Dosage: UNK

REACTIONS (7)
  - Paraesthesia [Recovered/Resolved]
  - Constipation [Recovered/Resolved]
  - Off label use [Unknown]
  - Deep vein thrombosis [Recovered/Resolved with Sequelae]
  - Haematochezia [Recovered/Resolved]
  - Vomiting [Recovered/Resolved]
  - Nausea [Recovered/Resolved with Sequelae]

NARRATIVE: CASE EVENT DATE: 20170422
